FAERS Safety Report 5967993-2 (Version None)
Quarter: 2008Q4

REPORT INFORMATION
  Report Type: 
  Country: None (occurrence: None)
  Receive Date: 20081126
  Receipt Date: 20081124
  Transmission Date: 20090506
  Serious: Yes (Other)
  Sender: FDA-Public Use
  Company Number: JP-BRISTOL-MYERS SQUIBB COMPANY-14409486

PATIENT
  Age: 21 Year
  Sex: Male

DRUGS (1)
  1. TRIAMCINOLONE ACETONIDE [Suspect]
     Indication: ALOPECIA AREATA
     Route: 030

REACTIONS (2)
  - LICHEN PLANUS [None]
  - LICHEN STRIATUS [None]
